FAERS Safety Report 5752266-3 (Version None)
Quarter: 2008Q2

REPORT INFORMATION
  Report Type: 
  Country: None (occurrence: None)
  Receive Date: 20080527
  Receipt Date: 20080428
  Transmission Date: 20081010
  Serious: Yes (Hospitalization)
  Sender: FDA-Public Use
  Company Number: 2008AL002686

PATIENT
  Age: 74 Year
  Sex: Male

DRUGS (1)
  1. DIGOXIN [Suspect]
     Indication: ARRHYTHMIA
     Dosage: 0.25 MG;QD;PO
     Route: 048
     Dates: end: 20080423

REACTIONS (1)
  - CEREBROVASCULAR ACCIDENT [None]
